FAERS Safety Report 26123949 (Version 1)
Quarter: 2025Q4

REPORT INFORMATION
  Report Type: Report from Study
  Country: CA (occurrence: CA)
  Receive Date: 20251205
  Receipt Date: 20251205
  Transmission Date: 20260118
  Serious: Yes (Hospitalization, Other)
  Sender: KYOWA
  Company Number: CA-KYOWAKIRIN-2025KK023193

PATIENT

DRUGS (4)
  1. MOGAMULIZUMAB [Suspect]
     Active Substance: MOGAMULIZUMAB
     Indication: Cutaneous T-cell lymphoma
     Dosage: 1 MG/KG ON DAYS 1 AND 15 OF EVERY 28 DAYS CYCLE
     Route: 042
     Dates: start: 20230920, end: 20241224
  2. MOGAMULIZUMAB [Suspect]
     Active Substance: MOGAMULIZUMAB
     Dosage: 1 MG/KG ON DAYS 1 ONLY AND EVERY 6 WEEKS
     Route: 042
     Dates: start: 20250205
  3. MOGAMULIZUMAB [Suspect]
     Active Substance: MOGAMULIZUMAB
     Dosage: 1 MG/KG ON DAYS 1 ONLY AND EVERY 6 WEEKS
     Route: 042
     Dates: start: 20251022
  4. MOGAMULIZUMAB [Suspect]
     Active Substance: MOGAMULIZUMAB
     Dosage: 1 MG/KG ON DAYS 1 ONLY AND EVERY 6 WEEKS
     Route: 042
     Dates: start: 20251022

REACTIONS (2)
  - Cardiac arrest [Unknown]
  - Myocardial infarction [Unknown]

NARRATIVE: CASE EVENT DATE: 20250101
